FAERS Safety Report 8672024 (Version 7)
Quarter: 2013Q1

REPORT INFORMATION
  Report Type: Spontaneous
  Country: US (occurrence: US)
  Receive Date: 20120719
  Receipt Date: 20130315
  Transmission Date: 20140127
  Serious: Yes (Hospitalization, Other)
  Sender: FDA-Public Use
  Company Number: US-009507513-1207USA002072

PATIENT
  Age: 52 None
  Sex: Female

DRUGS (11)
  1. PEGINTRON [Suspect]
     Indication: HEPATITIS C
     Dosage: UNK
     Dates: start: 20120517
  2. REBETOL [Suspect]
     Indication: HEPATITIS C
     Dosage: 2 DF, BID
     Dates: start: 20120517
  3. REBETOL [Suspect]
     Dosage: 1 DF, BID
     Dates: start: 201207
  4. FOSAMAX [Concomitant]
  5. TEMAZEPAM [Concomitant]
  6. OXYCODONE [Concomitant]
  7. NIFEDIPINE [Concomitant]
  8. LISINOPRIL [Concomitant]
  9. COREG [Concomitant]
  10. ASPIRIN [Concomitant]
  11. AMITRIPTYLINE HYDROCHLORIDE [Concomitant]

REACTIONS (10)
  - Dizziness [Not Recovered/Not Resolved]
  - Hypotension [Unknown]
  - Loss of consciousness [Unknown]
  - Contusion [Unknown]
  - Platelet count decreased [Unknown]
  - Back pain [Unknown]
  - Vomiting [Unknown]
  - Injection site reaction [Unknown]
  - Injury [Unknown]
  - Chest pain [Recovered/Resolved]
